FAERS Safety Report 7424773-9 (Version None)
Quarter: 2011Q2

REPORT INFORMATION
  Report Type: 
  Country: None (occurrence: None)
  Receive Date: 20110419
  Receipt Date: 20100423
  Transmission Date: 20111010
  Serious: No
  Sender: FDA-Public Use
  Company Number: US-ABBOTT-10P-163-0619604-00

PATIENT
  Sex: Female

DRUGS (1)
  1. LUPRON DEPOT-PED [Suspect]
     Indication: PRECOCIOUS PUBERTY
     Dates: start: 20091116, end: 20091116

REACTIONS (2)
  - INJECTION SITE REACTION [None]
  - CYST [None]
